FAERS Safety Report 4698719-0 (Version None)
Quarter: 2005Q2

REPORT INFORMATION
  Report Type: 
  Country: None (occurrence: None)
  Receive Date: 20050622
  Receipt Date: 20050609
  Transmission Date: 20051028
  Serious: Yes (Death, Hospitalization)
  Sender: FDA-Public Use
  Company Number: 215285

PATIENT
  Age: 64 Year
  Sex: Female

DRUGS (2)
  1. AVASTIN [Suspect]
     Indication: PERITONEAL CARCINOMA
     Dosage: 10 MG/KG, 1/WEEK, INTRAVENOUS
     Route: 042
     Dates: start: 20050419, end: 20050419
  2. CYCLOPHOSPHAMIDE [Suspect]
     Indication: PERITONEAL CARCINOMA
     Dosage: 50 MG, QD, ORAL
     Route: 048
     Dates: start: 20050419, end: 20050425

REACTIONS (7)
  - DYSPNOEA [None]
  - OXYGEN SATURATION DECREASED [None]
  - PULMONARY EMBOLISM [None]
  - PULMONARY HYPERTENSION [None]
  - RESPIRATORY RATE INCREASED [None]
  - TACHYPNOEA [None]
  - TROPONIN T INCREASED [None]
